FAERS Safety Report 21103125 (Version 2)
Quarter: 2022Q3

REPORT INFORMATION
  Report Type: Other
  Country: KR (occurrence: None)
  Receive Date: 20220720
  Receipt Date: 20220729
  Transmission Date: 20221026
  Serious: Yes (Hospitalization)
  Sender: FDA-Public Use
  Company Number: KR-ROCHE-3138150

PATIENT
  Age: 74 Year
  Sex: Male
  Weight: 54.8 kg

DRUGS (17)
  1. ATEZOLIZUMAB [Suspect]
     Active Substance: ATEZOLIZUMAB
     Indication: Non-small cell lung cancer metastatic
     Dosage: ON 21/JUN/2021, 26/JUL/2021, SUBSEQUENT DOSE OF ATEZOLIZUMAB 1200 MG WAS ADMINISTERED.
     Route: 041
     Dates: start: 20210521
  2. CARBOPLATIN [Suspect]
     Active Substance: CARBOPLATIN
     Indication: Non-small cell lung cancer metastatic
     Route: 042
     Dates: start: 20210521
  3. FEROBA YOU [Concomitant]
     Route: 048
     Dates: start: 20170728
  4. CILOSTAZOL [Concomitant]
     Active Substance: CILOSTAZOL
     Indication: Hypertension
     Route: 048
     Dates: start: 20191210
  5. HARNAL [Concomitant]
     Active Substance: TAMSULOSIN HYDROCHLORIDE
     Indication: Benign prostatic hyperplasia
     Route: 048
     Dates: start: 20200129
  6. MICARDIS [Concomitant]
     Active Substance: TELMISARTAN
     Indication: Hypertension
     Route: 048
     Dates: start: 20200128
  7. CRESTOR [Concomitant]
     Active Substance: ROSUVASTATIN CALCIUM
     Indication: Hyperlipidaemia
     Route: 048
     Dates: start: 20210512
  8. ACTOS [Concomitant]
     Active Substance: PIOGLITAZONE HYDROCHLORIDE
     Indication: Diabetes mellitus
     Route: 048
     Dates: start: 20191210
  9. BASEN (SOUTH KOREA) [Concomitant]
     Indication: Diabetes mellitus
     Route: 048
     Dates: start: 20210423
  10. ERDOSTEINE [Concomitant]
     Active Substance: ERDOSTEINE
     Route: 048
     Dates: start: 20200129
  11. MUCOPECT [Concomitant]
     Route: 048
     Dates: start: 20200219
  12. CALTRATE WITH VITAMIN D [Concomitant]
     Active Substance: CALCIUM CARBONATE\CHOLECALCIFEROL
     Route: 048
     Dates: start: 20210512
  13. FEBUXOSTAT [Concomitant]
     Active Substance: FEBUXOSTAT
     Indication: Gout
     Dosage: 0.25 T
     Route: 048
     Dates: start: 20200128
  14. FENTANYL [Concomitant]
     Active Substance: FENTANYL
     Indication: Cancer pain
     Dosage: 1PACK
     Route: 062
     Dates: start: 20191224
  15. EMEND [Concomitant]
     Active Substance: APREPITANT
     Dosage: 1A
     Route: 042
     Dates: start: 20210521
  16. ALOXI [Concomitant]
     Active Substance: PALONOSETRON HYDROCHLORIDE
     Route: 042
     Dates: start: 20210521
  17. PAMISOL (SOUTH KOREA) [Concomitant]
     Dosage: 1 BOTTLE
     Route: 042
     Dates: start: 20210514, end: 20210522

REACTIONS (5)
  - Decreased appetite [Not Recovered/Not Resolved]
  - Anaemia [Recovered/Resolved]
  - Stomatitis [Recovered/Resolved]
  - Anaemia [Recovered/Resolved]
  - Dysphagia [Not Recovered/Not Resolved]

NARRATIVE: CASE EVENT DATE: 20210531
